FAERS Safety Report 4299495-6 (Version None)
Quarter: 2004Q1

REPORT INFORMATION
  Report Type: 
  Country: None (occurrence: None)
  Receive Date: 20040217
  Receipt Date: 20040205
  Transmission Date: 20041129
  Serious: Yes (Other)
  Sender: FDA-Public Use
  Company Number: GB-JNJFOC-20040201307

PATIENT
  Age: 6 Year

DRUGS (1)
  1. CONCERTA [Suspect]
     Dosage: 36 MG

REACTIONS (1)
  - HALLUCINATION [None]
